FAERS Safety Report 4968499-X (Version None)
Quarter: 2006Q2

REPORT INFORMATION
  Report Type: 
  Country: None (occurrence: None)
  Receive Date: 20060410
  Receipt Date: 20060406
  Transmission Date: 20061013
  Serious: Yes (Hospitalization)
  Sender: FDA-Public Use
  Company Number: GB-MERCK-0604GBR00040

PATIENT
  Age: 73 Year
  Sex: Female

DRUGS (10)
  1. FOSAMAX [Suspect]
     Route: 048
  2. HUMIRA [Suspect]
     Indication: RHEUMATOID ARTHRITIS
     Route: 065
     Dates: start: 20040415
  3. ETIDRONATE DISODIUM [Suspect]
     Route: 065
  4. FOLIC ACID [Suspect]
     Route: 065
  5. RANITIDINE [Suspect]
     Route: 065
  6. ATENOLOL AND CHLORTHALIDONE [Suspect]
     Route: 065
  7. OMEPRAZOLE [Suspect]
     Route: 065
  8. DICLOFENAC SODIUM [Suspect]
     Route: 065
  9. METHOTREXATE [Concomitant]
     Route: 065
  10. PREDNISOLONE [Concomitant]
     Route: 065

REACTIONS (4)
  - DIARRHOEA [None]
  - GASTRIC INFECTION [None]
  - GASTROENTERITIS ESCHERICHIA COLI [None]
  - URINARY TRACT INFECTION [None]
